FAERS Safety Report 5985200-1 (Version None)
Quarter: 2008Q4

REPORT INFORMATION
  Report Type: 
  Country: None (occurrence: None)
  Receive Date: 20081203
  Receipt Date: 20081117
  Transmission Date: 20090506
  Serious: Yes (Disabling, Other)
  Sender: FDA-Public Use
  Company Number: PHEH2008US10320

PATIENT
  Age: 46 Year
  Sex: Female

DRUGS (7)
  1. ACETAMINOPHEN, BUTALBITAL AND CAFFEINE [Suspect]
     Indication: MIGRAINE
  2. METHOCARBAMOL [Suspect]
     Indication: PAIN
  3. KADIAN [Suspect]
     Indication: NECK PAIN
     Dates: start: 20041119
  4. OXYCODONE HCL [Suspect]
     Indication: PAIN
  5. EFFEXOR [Suspect]
     Indication: DEPRESSION
     Dates: start: 20040401
  6. MS CONTIN [Suspect]
     Indication: PAIN
  7. DRUG THERAPY NOS (DRUG THERAPY NOS) [Concomitant]
     Indication: NECK PAIN
     Dosage: INTRAMUSCULAR
     Route: 030
     Dates: start: 20041119, end: 20041119

REACTIONS (27)
  - ALCOHOL USE [None]
  - ARTHRALGIA [None]
  - BACK PAIN [None]
  - CERVICAL SPINAL STENOSIS [None]
  - CONFUSIONAL STATE [None]
  - DEPRESSION [None]
  - DISTURBANCE IN ATTENTION [None]
  - DYSSTASIA [None]
  - FATIGUE [None]
  - GAIT DISTURBANCE [None]
  - IMPAIRED HEALING [None]
  - IMPAIRED WORK ABILITY [None]
  - INADEQUATE ANALGESIA [None]
  - INTERVERTEBRAL DISC DEGENERATION [None]
  - JOINT RANGE OF MOTION DECREASED [None]
  - MEMORY IMPAIRMENT [None]
  - MIGRAINE [None]
  - MUSCULOSKELETAL PAIN [None]
  - MYALGIA [None]
  - NECK PAIN [None]
  - OSTEOARTHRITIS [None]
  - PAIN [None]
  - PAIN IN EXTREMITY [None]
  - ROAD TRAFFIC ACCIDENT [None]
  - SOMNOLENCE [None]
  - SPINAL DISORDER [None]
  - SPINAL X-RAY ABNORMAL [None]
